FAERS Safety Report 5713863-4 (Version None)
Quarter: 2008Q2

REPORT INFORMATION
  Report Type: 
  Country: None (occurrence: None)
  Receive Date: 20080421
  Receipt Date: 20080407
  Transmission Date: 20081010
  Serious: Yes (Death, Hospitalization, Disabling)
  Sender: FDA-Public Use
  Company Number: JPKYO-S-20080014

PATIENT
  Age: 56 Year
  Sex: Female

DRUGS (8)
  1. NAVELBINE [Suspect]
     Indication: BREAST CANCER
     Dosage: 25 MG/M2 IV
     Route: 042
     Dates: start: 20070806, end: 20071017
  2. KYTRIL [Concomitant]
  3. OXYCONTIN [Concomitant]
  4. HYPEN [Concomitant]
  5. NEUROTROPIN. MFR: NOT SPECIFIED [Concomitant]
  6. TRYPTANOL. MFR: NOT SPECIFIED [Concomitant]
  7. MAGMITT. MFR: NOT SPECIFIED [Concomitant]
  8. ZOMETA [Concomitant]

REACTIONS (7)
  - AMNESIA [None]
  - APHASIA [None]
  - CEREBRAL INFARCTION [None]
  - DEPRESSED LEVEL OF CONSCIOUSNESS [None]
  - DYSARTHRIA [None]
  - HEMIPLEGIA [None]
  - METASTASES TO MENINGES [None]
